FAERS Safety Report 4907722-4 (Version None)
Quarter: 2006Q1

REPORT INFORMATION
  Report Type: 
  Country: None (occurrence: None)
  Receive Date: 20060208
  Receipt Date: 20060208
  Transmission Date: 20060701
  Serious: Yes (Other)
  Sender: FDA-Public Use
  Company Number: None

PATIENT
  Age: 55 Year
  Sex: Male
  Weight: 90.6 kg

DRUGS (1)
  1. HYDROCHLOROTHIAZIDE [Suspect]

REACTIONS (2)
  - HYPONATRAEMIA [None]
  - NONSPECIFIC REACTION [None]
